FAERS Safety Report 18467448 (Version 2)
Quarter: 2021Q1

REPORT INFORMATION
  Report Type: Report from Study
  Country: NL (occurrence: NL)
  Receive Date: 20201105
  Receipt Date: 20210115
  Transmission Date: 20210419
  Serious: Yes (Hospitalization)
  Sender: FDA-Public Use
  Company Number: NL-ROCHE-2705433

PATIENT
  Age: 80 Year
  Sex: Male
  Weight: 87.4 kg

DRUGS (8)
  1. CISPLATIN. [Concomitant]
     Active Substance: CISPLATIN
     Route: 042
  2. DOCETAXEL. [Concomitant]
     Active Substance: DOCETAXEL
     Route: 042
  3. OXALIPLATIN. [Suspect]
     Active Substance: OXALIPLATIN
     Indication: HER2 POSITIVE GASTRIC CANCER
     Dosage: MOST RECENT DOSE OF OXLAIPLATION PRIOR TO SAE ONSET ON 07/SEP/2020
     Route: 042
     Dates: start: 20200728
  4. LEUCOVORIN. [Concomitant]
     Active Substance: LEUCOVORIN
     Route: 042
  5. CAPECITABINE. [Suspect]
     Active Substance: CAPECITABINE
     Indication: HER2 POSITIVE GASTRIC CANCER
     Dosage: D1?14 IN 3 WEEKLY SCHEDULE?MOST RECENT DOSE OF CAPECITABINE PRIOR TO SAE ONSET ON 21/SEP/2020
     Route: 048
     Dates: start: 20200728
  6. FLUOROURACIL. [Concomitant]
     Active Substance: FLUOROURACIL
     Route: 042
  7. TRASTUZUMAB. [Concomitant]
     Active Substance: TRASTUZUMAB
     Route: 042
  8. PERTUZUMAB. [Concomitant]
     Active Substance: PERTUZUMAB
     Route: 042

REACTIONS (2)
  - Haemorrhage [Recovered/Resolved]
  - Anastomotic leak [Recovering/Resolving]

NARRATIVE: CASE EVENT DATE: 20201026
